FAERS Safety Report 4765381-8 (Version None)
Quarter: 2005Q3

REPORT INFORMATION
  Report Type: 
  Country: None (occurrence: None)
  Receive Date: 20050808
  Receipt Date: 20050808
  Transmission Date: 20060218
  Serious: Yes (Hospitalization)
  Sender: FDA-Public Use
  Company Number: None

PATIENT
  Sex: Male
  Weight: 87 kg

DRUGS (2)
  1. CARDURA [Suspect]
     Indication: CORONARY ARTERY DISEASE
     Dates: start: 20050818
  2. NITROGLYCERIN [Suspect]

REACTIONS (2)
  - CHEST PAIN [None]
  - THERAPY NON-RESPONDER [None]
